FAERS Safety Report 24396951 (Version 1)
Quarter: 2024Q4

REPORT INFORMATION
  Report Type: Spontaneous
  Country: US (occurrence: US)
  Receive Date: 20241004
  Receipt Date: 20241004
  Transmission Date: 20250114
  Serious: Yes (Hospitalization, Other)
  Sender: BIOGEN
  Company Number: US-BBU-2024000292

PATIENT
  Age: 64 Year
  Sex: Female

DRUGS (2)
  1. TOCILIZUMAB [Suspect]
     Active Substance: TOCILIZUMAB
     Indication: Rheumatoid arthritis-associated interstitial lung disease
  2. BASILIXIMAB [Suspect]
     Active Substance: BASILIXIMAB
     Indication: Immunosuppression

REACTIONS (3)
  - Post transplant lymphoproliferative disorder [Recovered/Resolved]
  - Pleural effusion [Unknown]
  - Off label use [Unknown]
